FAERS Safety Report 15928713 (Version 2)
Quarter: 2020Q2

REPORT INFORMATION
  Report Type: Spontaneous
  Country: HR (occurrence: HR)
  Receive Date: 20190206
  Receipt Date: 20200602
  Transmission Date: 20200713
  Serious: Yes (Other)
  Sender: FDA-Public Use
  Company Number: HR-ALEXION PHARMACEUTICALS INC.-A201901686

PATIENT
  Age: 14 Month
  Sex: Male

DRUGS (12)
  1. VANCOMYCIN [Concomitant]
     Active Substance: VANCOMYCIN
     Indication: ANTIBIOTIC THERAPY
  2. SOLIRIS [Suspect]
     Active Substance: ECULIZUMAB
     Indication: THROMBOTIC MICROANGIOPATHY
     Dosage: 300 MG, UNK
     Route: 065
  3. METRONIDAZOLE. [Concomitant]
     Active Substance: METRONIDAZOLE
     Indication: CLOSTRIDIUM DIFFICILE COLITIS
     Dosage: UNK
     Route: 065
  4. VITAMIN K [Concomitant]
     Active Substance: PHYTONADIONE
     Indication: SUPPLEMENTATION THERAPY
     Dosage: UNK
     Route: 065
  5. SOLIRIS [Suspect]
     Active Substance: ECULIZUMAB
     Indication: CLOSTRIDIAL SEPSIS
  6. SOLIRIS [Suspect]
     Active Substance: ECULIZUMAB
     Indication: OFF LABEL USE
  7. SOLIRIS [Suspect]
     Active Substance: ECULIZUMAB
     Indication: DISSEMINATED INTRAVASCULAR COAGULATION
     Dosage: 600 MG, UNK
     Route: 065
  8. IMMUNOGLOBULIN                     /00025201/ [Concomitant]
     Active Substance: HUMAN IMMUNOGLOBULIN G
     Indication: PRODUCT USED FOR UNKNOWN INDICATION
     Dosage: UNK
     Route: 065
  9. METRONIDAZOLE. [Concomitant]
     Active Substance: METRONIDAZOLE
     Indication: ANTIBIOTIC THERAPY
  10. SOLIRIS [Suspect]
     Active Substance: ECULIZUMAB
     Indication: SEPSIS
  11. SOLIRIS [Suspect]
     Active Substance: ECULIZUMAB
     Indication: MULTIPLE ORGAN DYSFUNCTION SYNDROME
  12. VANCOMYCIN [Concomitant]
     Active Substance: VANCOMYCIN
     Indication: CLOSTRIDIUM DIFFICILE COLITIS
     Dosage: UNK
     Route: 065

REACTIONS (6)
  - Diarrhoea haemorrhagic [Recovered/Resolved]
  - Tubulointerstitial nephritis [Recovered/Resolved]
  - Thrombotic microangiopathy [Recovered/Resolved]
  - Renal impairment [Not Recovered/Not Resolved]
  - Off label use [Recovered/Resolved]
  - Hepatic failure [Unknown]

NARRATIVE: CASE EVENT DATE: 20200521
